FAERS Safety Report 24580437 (Version 2)
Quarter: 2024Q4

REPORT INFORMATION
  Report Type: Spontaneous
  Country: CN (occurrence: CN)
  Receive Date: 20241105
  Receipt Date: 20241108
  Transmission Date: 20250115
  Serious: Yes (Other)
  Sender: PFIZER
  Company Number: CN-PFIZER INC-PV202400141117

PATIENT
  Age: 50 Year
  Sex: Female
  Weight: 56.7 kg

DRUGS (9)
  1. EPIRUBICIN [Suspect]
     Active Substance: EPIRUBICIN
     Indication: Chemotherapy
     Dosage: 145 MG, 1X/DAY
     Route: 041
     Dates: start: 20241001, end: 20241001
  2. EPIRUBICIN [Suspect]
     Active Substance: EPIRUBICIN
     Indication: Breast cancer stage I
     Dosage: 145 MG, 1X/DAY
     Route: 041
     Dates: start: 20241020, end: 20241020
  3. EPIRUBICIN [Suspect]
     Active Substance: EPIRUBICIN
     Dosage: 145 MG, 1X/DAY
     Route: 041
     Dates: start: 20241022, end: 20241022
  4. CYCLOPHOSPHAMIDE [Suspect]
     Active Substance: CYCLOPHOSPHAMIDE
     Indication: Chemotherapy
     Dosage: 0.87 G, 1X/DAY
     Route: 041
     Dates: start: 20241001, end: 20241001
  5. CYCLOPHOSPHAMIDE [Suspect]
     Active Substance: CYCLOPHOSPHAMIDE
     Indication: Breast cancer stage I
     Dosage: 0.87 G, 1X/DAY
     Route: 041
     Dates: start: 20241020, end: 20241020
  6. CYCLOPHOSPHAMIDE [Suspect]
     Active Substance: CYCLOPHOSPHAMIDE
     Dosage: 0.87 G, 1X/DAY
     Route: 041
     Dates: start: 20241022, end: 20241022
  7. SODIUM CHLORIDE [Concomitant]
     Active Substance: SODIUM CHLORIDE
     Indication: Chemotherapy
     Dosage: 100 ML, 1X/DAY
     Route: 041
     Dates: start: 20241001, end: 20241001
  8. SODIUM CHLORIDE [Concomitant]
     Active Substance: SODIUM CHLORIDE
     Indication: Neoplasm malignant
     Dosage: 100 ML, 1X/DAY
     Route: 041
     Dates: start: 20241020, end: 20241020
  9. SODIUM CHLORIDE [Concomitant]
     Active Substance: SODIUM CHLORIDE
     Dosage: 100 ML, 1X/DAY
     Route: 041
     Dates: start: 20241022, end: 20241022

REACTIONS (5)
  - Hyperkalaemia [Recovering/Resolving]
  - White blood cell count decreased [Recovering/Resolving]
  - Neutrophil count decreased [Recovering/Resolving]
  - Tonsillitis bacterial [Recovering/Resolving]
  - Upper respiratory tract infection [Recovering/Resolving]

NARRATIVE: CASE EVENT DATE: 20241003
